FAERS Safety Report 8976145 (Version 1)
Quarter: 2012Q4

REPORT INFORMATION
  Report Type: 
  Country: BR (occurrence: BR)
  Receive Date: 20121220
  Receipt Date: 20121220
  Transmission Date: 20130627
  Serious: Yes (Other)
  Sender: FDA-Public Use
  Company Number: PHHY2012BR116360

PATIENT
  Age: 71 Year
  Sex: Male

DRUGS (1)
  1. FORASEQ [Suspect]

REACTIONS (1)
  - Lung neoplasm malignant [Unknown]
